FAERS Safety Report 8594823 (Version 2)
Quarter: 2013Q1

REPORT INFORMATION
  Report Type: Spontaneous
  Country: FR (occurrence: FR)
  Receive Date: 20120604
  Receipt Date: 20130220
  Transmission Date: 20140127
  Serious: Yes (Death, Hospitalization)
  Sender: FDA-Public Use
  Company Number: FR-BRISTOL-MYERS SQUIBB COMPANY-16613556

PATIENT
  Age: 66 Year
  Sex: Female
  Weight: 89 kg

DRUGS (12)
  1. ABILIFY [Suspect]
     Indication: AFFECTIVE DISORDER
     Route: 048
  2. DAFALGAN [Suspect]
  3. SOTALEX [Suspect]
  4. TEMESTA [Suspect]
  5. PREVISCAN [Suspect]
     Indication: ANTICOAGULANT THERAPY
     Dosage: 1 DF= QUARTER OF TABLET PER DAY
  6. NORSET [Concomitant]
  7. MERCAZOLE [Concomitant]
     Dosage: NEO-MERCAZOLE
  8. DEPAKOTE [Concomitant]
  9. FORLAX [Concomitant]
  10. PIASCLEDINE [Concomitant]
  11. OSTRAM D3 [Concomitant]
     Route: 048
  12. OSTRAM D3 [Concomitant]
     Route: 048

REACTIONS (10)
  - Aneurysm ruptured [Fatal]
  - Cerebral haemorrhage [Fatal]
  - Dizziness [Unknown]
  - Arrhythmia [None]
  - Psychiatric decompensation [None]
  - Hypertension [None]
  - International normalised ratio increased [None]
  - Epilepsy [None]
  - Gait disturbance [None]
  - Back pain [None]
